FAERS Safety Report 6568110-0 (Version None)
Quarter: 2010Q1

REPORT INFORMATION
  Report Type: 
  Country: None (occurrence: None)
  Receive Date: 20100128
  Receipt Date: 20100115
  Transmission Date: 20100710
  Serious: Yes (Other)
  Sender: FDA-Public Use
  Company Number: 2010AP000106

PATIENT
  Sex: Female

DRUGS (3)
  1. CLARITHROMYCIN [Suspect]
  2. CLAVULANATE POTASSIUM [Suspect]
  3. OSELTAMIVIR PHOSPHATE [Suspect]

REACTIONS (4)
  - CAESAREAN SECTION [None]
  - FOETAL DISTRESS SYNDROME [None]
  - H1N1 INFLUENZA [None]
  - MATERNAL DRUGS AFFECTING FOETUS [None]
